FAERS Safety Report 5036747-6 (Version None)
Quarter: 2006Q2

REPORT INFORMATION
  Report Type: 
  Country: None (occurrence: None)
  Receive Date: 20060616
  Receipt Date: 20060313
  Transmission Date: 20061013
  Serious: No
  Sender: FDA-Public Use
  Company Number: 2006RL000085

PATIENT
  Age: 45 Year
  Sex: Female
  Weight: 117.9352 kg

DRUGS (16)
  1. OMACOR [Suspect]
     Indication: BLOOD TRIGLYCERIDES
     Dosage: 2 MG; QD; PO
     Route: 048
     Dates: start: 20060312, end: 20060312
  2. METFORMIN [Concomitant]
  3. PREDNISONE [Concomitant]
  4. NIFEDICAL [Concomitant]
  5. OSTEO BI-FLEX [Concomitant]
  6. FUROSEMIDE [Concomitant]
  7. AMARYL [Concomitant]
  8. VYTORIN [Concomitant]
  9. ECOTRIN [Concomitant]
  10. MOBIC [Concomitant]
  11. ZYRTEC [Concomitant]
  12. POTASSIUM [Concomitant]
  13. ADVAIR DISKUS 100/50 [Concomitant]
  14. ZOLOFT [Concomitant]
  15. PROVENTIL [Concomitant]
  16. XENICAL [Concomitant]

REACTIONS (4)
  - ERYTHEMA [None]
  - FEELING HOT [None]
  - RASH GENERALISED [None]
  - SWELLING FACE [None]
